FAERS Safety Report 7227311-9 (Version None)
Quarter: 2011Q1

REPORT INFORMATION
  Report Type: 
  Country: None (occurrence: None)
  Receive Date: 20110114
  Receipt Date: 20110112
  Transmission Date: 20110831
  Serious: Yes (Disabling)
  Sender: FDA-Public Use
  Company Number: B0693162A

PATIENT
  Age: 75 Year
  Sex: Female
  Weight: 74 kg

DRUGS (10)
  1. CANDESARTAN [Concomitant]
     Dates: start: 20090701
  2. SIMVASTATIN [Concomitant]
     Dates: start: 20090227
  3. ASPIRIN [Concomitant]
     Dates: start: 20090227
  4. DIGOXIN [Concomitant]
     Dates: start: 20090227
  5. PARACETAMOL [Concomitant]
     Dates: start: 20090227
  6. LANSOPRAZOLE [Concomitant]
     Dates: start: 20090227
  7. ALBUTEROL [Suspect]
     Dates: start: 20110106
  8. FOLIC ACID [Concomitant]
     Dates: start: 20090227
  9. FUROSEMIDE [Concomitant]
     Dates: start: 20090227
  10. LEVOMEPROMAZINE [Concomitant]
     Dates: start: 20090227

REACTIONS (1)
  - DYSPNOEA [None]
